FAERS Safety Report 21162173 (Version 1)
Quarter: 2022Q3

REPORT INFORMATION
  Report Type: Report from Study
  Country: CA (occurrence: CA)
  Receive Date: 20220802
  Receipt Date: 20220802
  Transmission Date: 20221027
  Serious: Yes (Death, Hospitalization)
  Sender: FDA-Public Use
  Company Number: CA-MYLANLABS-2022M1083293

PATIENT
  Age: 17 Year

DRUGS (1)
  1. CLOZAPINE [Suspect]
     Active Substance: CLOZAPINE
     Indication: Constipation
     Dosage: UNK
     Route: 065

REACTIONS (5)
  - Death [Fatal]
  - Hypoglycaemia [Unknown]
  - Confusional state [Unknown]
  - Delirium [Unknown]
  - Product use in unapproved indication [Unknown]

NARRATIVE: CASE EVENT DATE: 20220101
